FAERS Safety Report 9000784 (Version 4)
Quarter: 2013Q1

REPORT INFORMATION
  Report Type: Spontaneous
  Country: GB (occurrence: GB)
  Receive Date: 20130107
  Receipt Date: 20130130
  Transmission Date: 20140127
  Serious: Yes (Death, Hospitalization, Other)
  Sender: FDA-Public Use
  Company Number: PHFR2013GB000471

PATIENT
  Age: 87 Year
  Sex: Male
  Weight: 90 kg

DRUGS (1)
  1. EXELON PATCH [Suspect]
     Indication: AMNESIA
     Dosage: 9.5 MG, DAILY
     Route: 062
     Dates: end: 20120130

REACTIONS (5)
  - Myocardial infarction [Fatal]
  - Hallucination [Recovered/Resolved]
  - Pneumonia [Recovering/Resolving]
  - Renal failure [Recovering/Resolving]
  - Drug administration error [Unknown]
